FAERS Safety Report 9600774 (Version 1)
Quarter: 2013Q4

REPORT INFORMATION
  Report Type: Spontaneous
  Country: US (occurrence: US)
  Receive Date: 20131004
  Receipt Date: 20131004
  Transmission Date: 20140711
  Serious: No
  Sender: FDA-Public Use
  Company Number: US-AMGEN-USASP2013036511

PATIENT
  Age: 42 Year
  Sex: Female
  Weight: 65.76 kg

DRUGS (13)
  1. ENBREL [Suspect]
     Indication: PRODUCT USED FOR UNKNOWN INDICATION
     Dosage: 50 MG, 2 TIMES/WK
     Route: 058
  2. BORAGO OFFICINALIS [Concomitant]
     Dosage: UNK
  3. FLAXSEED OIL [Concomitant]
     Dosage: UNK
  4. FISH OIL [Concomitant]
     Dosage: UNK
  5. FOLIC ACID [Concomitant]
     Dosage: UNK
  6. GLUCOSAMINE CHONDROITIN MSM [Concomitant]
     Dosage: UNK
  7. VITAMIN B12                        /00056201/ [Concomitant]
     Dosage: 1000 MUG, UNK
  8. MULTICAPS [Concomitant]
     Dosage: UNK
  9. VITAMIN D                          /00107901/ [Concomitant]
     Dosage: 400 UNIT, UNK
  10. VITAMIN K                          /00032401/ [Concomitant]
     Dosage: 100 MUG, UNK
  11. VITAMIN C                          /00008001/ [Concomitant]
     Dosage: 500 MG, UNK
  12. LEFLUNOMIDE [Concomitant]
     Dosage: 10 MG, UNK
  13. PROBIOTICS [Concomitant]
     Dosage: UNK

REACTIONS (1)
  - Injection site pain [Recovered/Resolved]
